FAERS Safety Report 7326934-6 (Version None)
Quarter: 2011Q1

REPORT INFORMATION
  Report Type: 
  Country: None (occurrence: None)
  Receive Date: 20110302
  Receipt Date: 20100629
  Transmission Date: 20110831
  Serious: No
  Sender: FDA-Public Use
  Company Number: US-PFIZER INC-2010081910

PATIENT
  Sex: Female

DRUGS (1)
  1. DILANTIN-125 [Suspect]
     Dosage: UNK

REACTIONS (5)
  - FRUSTRATION [None]
  - BALANCE DISORDER [None]
  - HOT FLUSH [None]
  - FEELING ABNORMAL [None]
  - DRUG EFFECT DECREASED [None]
